FAERS Safety Report 5369306-6 (Version None)
Quarter: 2007Q2

REPORT INFORMATION
  Report Type: 
  Country: None (occurrence: None)
  Receive Date: 20070625
  Receipt Date: 20070301
  Transmission Date: 20071010
  Serious: No
  Sender: FDA-Public Use
  Company Number: US-ASTRAZENECA-2007UW03978

PATIENT
  Age: 69 Year
  Sex: Female
  Weight: 96.6 kg

DRUGS (10)
  1. CRESTOR [Suspect]
     Indication: BLOOD CHOLESTEROL INCREASED
     Route: 048
  2. HUMULIN 70/30 [Concomitant]
  3. GLUCOPHAGE [Concomitant]
  4. NEURONTIN [Concomitant]
  5. ELAVIL [Concomitant]
  6. NORVASC [Concomitant]
  7. COZAAR [Concomitant]
  8. VASOTEC [Concomitant]
  9. SYNTHROID [Concomitant]
  10. ASPIRIN [Concomitant]

REACTIONS (1)
  - RASH PRURITIC [None]
